FAERS Safety Report 25489999 (Version 2)
Quarter: 2025Q3

REPORT INFORMATION
  Report Type: Spontaneous
  Country: US (occurrence: US)
  Receive Date: 20250628
  Receipt Date: 20250821
  Transmission Date: 20251020
  Serious: No
  Sender: GLAXOSMITHKLINE
  Company Number: US-GSK-US2025074142

PATIENT
  Sex: Male
  Weight: 85 kg

DRUGS (1)
  1. TRELEGY ELLIPTA [Suspect]
     Active Substance: FLUTICASONE FUROATE\UMECLIDINIUM BROMIDE\VILANTEROL TRIFENATATE
     Indication: Chronic obstructive pulmonary disease
     Dosage: UNK, QD 200/62.5/25MCG
     Dates: start: 20240207

REACTIONS (4)
  - Wrong technique in device usage process [Unknown]
  - Product confusion [Unknown]
  - Overdose [Unknown]
  - Incorrect dose administered [Unknown]
